FAERS Safety Report 8311605-X (Version None)
Quarter: 2012Q2

REPORT INFORMATION
  Report Type: 
  Country: None (occurrence: None)
  Receive Date: 20120425
  Receipt Date: 20120417
  Transmission Date: 20120825
  Serious: Yes (Other)
  Sender: FDA-Public Use
  Company Number: US-JNJFOC-20120409186

PATIENT
  Sex: Female

DRUGS (12)
  1. DOXORUBICIN HCL [Suspect]
     Route: 042
  2. DOXORUBICIN HCL [Suspect]
     Route: 042
  3. DOXORUBICIN HCL [Suspect]
     Route: 042
  4. PACLITAXEL [Suspect]
     Route: 042
  5. CYCLOPHOSPHAMIDE [Suspect]
     Route: 042
  6. CYCLOPHOSPHAMIDE [Suspect]
     Route: 042
  7. CYCLOPHOSPHAMIDE [Suspect]
     Indication: BREAST CANCER
     Route: 042
  8. DOXORUBICIN HCL [Suspect]
     Indication: BREAST CANCER
     Route: 042
  9. PACLITAXEL [Suspect]
     Route: 042
  10. PACLITAXEL [Suspect]
     Indication: BREAST CANCER
     Route: 042
  11. PACLITAXEL [Suspect]
     Route: 042
  12. CYCLOPHOSPHAMIDE [Suspect]
     Route: 042

REACTIONS (6)
  - ANAEMIA [None]
  - NEUROPATHY PERIPHERAL [None]
  - FEBRILE NEUTROPENIA [None]
  - HYPERGLYCAEMIA [None]
  - BREAST CANCER RECURRENT [None]
  - VENOUS THROMBOSIS [None]
